FAERS Safety Report 19378427 (Version 2)
Quarter: 2021Q2

REPORT INFORMATION
  Report Type: Report from Study
  Country: BG (occurrence: BG)
  Receive Date: 20210605
  Receipt Date: 20210613
  Transmission Date: 20210717
  Serious: Yes (Death)
  Sender: FDA-Public Use
  Company Number: NVSC2021BG123300

PATIENT
  Age: 56 Year
  Sex: Female
  Weight: 47 kg

DRUGS (3)
  1. RIBOCICLIB. [Suspect]
     Active Substance: RIBOCICLIB
     Indication: BREAST CANCER
     Dosage: 200 MG, QD (3 TABLET OF 200 MG)
     Route: 048
     Dates: start: 20210402
  2. EXEMESTANE. [Concomitant]
     Active Substance: EXEMESTANE
     Indication: PRODUCT USED FOR UNKNOWN INDICATION
     Dosage: 25 MG
     Route: 065
  3. ZOLEDRONATE [Concomitant]
     Active Substance: ZOLEDRONIC ACID
     Indication: METASTASES TO BONE MARROW
     Dosage: 4 MG (ONCE EVERY 28 DAYS)
     Route: 042
     Dates: start: 20210305, end: 20210402

REACTIONS (4)
  - White blood cell count increased [Unknown]
  - Malignant neoplasm progression [Fatal]
  - Neutrophil count increased [Unknown]
  - Breast cancer [Fatal]

NARRATIVE: CASE EVENT DATE: 202105
